FAERS Safety Report 13303892 (Version 1)
Quarter: 2017Q1

REPORT INFORMATION
  Report Type: Not Available
  Country: AT (occurrence: AT)
  Receive Date: 20170307
  Receipt Date: 20170307
  Transmission Date: 20170428
  Serious: Yes (Other)
  Sender: FDA-Public Use
  Company Number: AT--2017-AT-000002

PATIENT
  Age: 69 Year
  Sex: Male

DRUGS (6)
  1. PREGABALIN. [Concomitant]
     Active Substance: PREGABALIN
     Indication: BACK PAIN
     Dosage: 600 MG PER DAY
  2. ZOLPIDEM TARTRATE BRAND UNSPECIFIED (VIVIMED) [Suspect]
     Active Substance: ZOLPIDEM TARTRATE
     Indication: PRODUCT USED FOR UNKNOWN INDICATION
     Dosage: 10 MG PER DAY
  3. ESOMEPRAZOLE [Concomitant]
     Active Substance: ESOMEPRAZOLE
     Indication: PRODUCT USED FOR UNKNOWN INDICATION
  4. OXYCODONE [Concomitant]
     Active Substance: OXYCODONE
     Indication: BACK PAIN
  5. ZIPRASIDONE. [Concomitant]
     Active Substance: ZIPRASIDONE
     Indication: PRODUCT USED FOR UNKNOWN INDICATION
  6. TAMSULOSIN [Concomitant]
     Active Substance: TAMSULOSIN
     Indication: PRODUCT USED FOR UNKNOWN INDICATION

REACTIONS (8)
  - Barrett^s oesophagus [Unknown]
  - Hiatus hernia [Unknown]
  - Gastric polyps [Unknown]
  - Depression [Recovered/Resolved]
  - Hyperaesthesia [Unknown]
  - Syncope [Recovered/Resolved]
  - Seizure [Recovered/Resolved]
  - Leukoencephalopathy [Unknown]
